FAERS Safety Report 23539881 (Version 1)
Quarter: 2024Q1

REPORT INFORMATION
  Report Type: Spontaneous
  Country: ES (occurrence: ES)
  Receive Date: 20240219
  Receipt Date: 20240219
  Transmission Date: 20240409
  Serious: Yes (Hospitalization)
  Sender: FDA-Public Use
  Company Number: None

PATIENT
  Age: 12 Year
  Sex: Male
  Weight: 80 kg

DRUGS (5)
  1. PROPOFOL [Suspect]
     Active Substance: PROPOFOL
     Indication: Sedation
     Dosage: (2373A)
     Route: 065
     Dates: start: 20231020, end: 20231116
  2. CLONIDINE [Suspect]
     Active Substance: CLONIDINE
     Dosage: (636A) (ADDITIONAL INFORMATION ON DRUG: ALPHA 2-A REGULATES NT BY ALTERING TEMPERATURE)
     Route: 048
     Dates: start: 20231106, end: 20231127
  3. MEROPENEM [Suspect]
     Active Substance: MEROPENEM
     Indication: Staphylococcal bacteraemia
     Dosage: (7155A)
     Route: 042
     Dates: start: 20231023, end: 20231116
  4. MORPHINE [Concomitant]
     Active Substance: MORPHINE
     Dosage: (1982A)
     Route: 042
     Dates: start: 20231023, end: 20231213
  5. HYDROCHLOROTHIAZIDE [Concomitant]
     Active Substance: HYDROCHLOROTHIAZIDE
     Dosage: (ADDITIONAL INFORMATION ON DRUG: HCTZ PRODUCES ARDS, FEVER IN THIS SETTING) 50 MILLIGRAM (MG), EVERY
     Route: 048
     Dates: start: 20231021, end: 20231113

REACTIONS (1)
  - Pyrexia [Recovered/Resolved]

NARRATIVE: CASE EVENT DATE: 20231108
